FAERS Safety Report 4909500-9 (Version None)
Quarter: 2006Q1

REPORT INFORMATION
  Report Type: 
  Country: None (occurrence: None)
  Receive Date: 20060208
  Receipt Date: 20060208
  Transmission Date: 20060701
  Serious: Yes (Other)
  Sender: FDA-Public Use
  Company Number: None

PATIENT
  Age: 43 Year
  Sex: Male
  Weight: 119.7496 kg

DRUGS (1)
  1. DURAGESIC-25 [Suspect]
     Indication: NECK PAIN
     Dosage: 25 MCG Q 72 HOURS
     Dates: start: 20050930, end: 20051001

REACTIONS (1)
  - INADEQUATE ANALGESIA [None]
